FAERS Safety Report 5322220-4 (Version None)
Quarter: 2007Q2

REPORT INFORMATION
  Report Type: 
  Country: None (occurrence: None)
  Receive Date: 20070511
  Receipt Date: 20070430
  Transmission Date: 20071010
  Serious: Yes (Hospitalization, Other)
  Sender: FDA-Public Use
  Company Number: CL-ROCHE-495814

PATIENT
  Age: 74 Year
  Sex: Female
  Weight: 70 kg

DRUGS (6)
  1. BONIVA [Suspect]
     Indication: OSTEOPOROSIS
     Dosage: REPORTED AS FILM COATED TABLETS.
     Route: 048
     Dates: start: 20070422, end: 20070425
  2. CYMBALTA [Concomitant]
     Indication: DEPRESSION
     Route: 048
     Dates: start: 20070201
  3. BUSPIRONE HCL [Concomitant]
     Indication: ANXIETY
     Dosage: DRUG REPORTED AS PAXON.
     Route: 048
     Dates: start: 20070201
  4. ZOLPIDEM TARTRATE [Concomitant]
     Indication: INSOMNIA
     Dosage: DRUG REPORTED AS ADORMIX
     Route: 048
     Dates: start: 20070201
  5. OMEPRAZOLE [Concomitant]
     Indication: GASTRITIS
     Route: 048
     Dates: start: 20060101
  6. SIMETHICONE [Concomitant]
     Dosage: SIMETHICONE 100 MG/METOCLOPRAMIDE HYDROCHLORIDE 5 MG (PANGASTREN). START DATE: 2007

REACTIONS (5)
  - ANGIOEDEMA [None]
  - DYSPHONIA [None]
  - DYSPNOEA [None]
  - ERYTHEMA [None]
  - PRURITUS GENERALISED [None]
